FAERS Safety Report 8188914-0 (Version None)
Quarter: 2012Q1

REPORT INFORMATION
  Report Type: 
  Country: None (occurrence: None)
  Receive Date: 20120306
  Receipt Date: 20120227
  Transmission Date: 20120608
  Serious: Yes (Hospitalization)
  Sender: FDA-Public Use
  Company Number: JP-MERCK-1110USA04489

PATIENT
  Age: 82 Year
  Sex: Female

DRUGS (14)
  1. ONEALFA [Concomitant]
     Indication: OSTEOPOROSIS
     Route: 048
  2. SENNOSIDES [Concomitant]
     Route: 048
  3. VITAMIN E NICOTINATE [Concomitant]
     Route: 048
  4. ICOSAPENT ETHYL [Concomitant]
     Route: 048
  5. LIMAPROST ALFADEX [Concomitant]
     Indication: PERIPHERAL ARTERIAL OCCLUSIVE DISEASE
     Route: 048
  6. ROSUVASTATIN CALCIUM [Concomitant]
     Route: 048
  7. FOSAMAX [Suspect]
     Indication: OSTEOPOROSIS
     Route: 048
     Dates: start: 20030101, end: 20090805
  8. ASPIRIN [Concomitant]
     Route: 048
  9. CARBOCYSTEINE [Concomitant]
     Route: 048
  10. PRAVASTATIN SODIUM [Concomitant]
     Route: 048
  11. NIFEDIPINE [Concomitant]
     Route: 048
  12. ASCORBIC ACID [Concomitant]
     Route: 048
  13. BERAPROST SODIUM [Concomitant]
     Indication: PERIPHERAL ARTERIAL OCCLUSIVE DISEASE
     Route: 048
  14. NORTRIPTYLINE HYDROCHLORIDE [Concomitant]
     Route: 048

REACTIONS (2)
  - OSTEOMYELITIS [None]
  - PRIMARY SEQUESTRUM [None]
